FAERS Safety Report 11630716 (Version 2)
Quarter: 2015Q4

REPORT INFORMATION
  Report Type: Spontaneous
  Country: US (occurrence: FR)
  Receive Date: 20151014
  Receipt Date: 20151029
  Transmission Date: 20160304
  Serious: Yes (Hospitalization)
  Sender: FDA-Public Use
  Company Number: FR-FRI-1000080250

PATIENT
  Age: 41 Year

DRUGS (3)
  1. LINACLOTIDE [Suspect]
     Active Substance: LINACLOTIDE
     Dosage: 290 MCG
     Route: 048
     Dates: start: 201502, end: 20150305
  2. MESTINON [Suspect]
     Active Substance: PYRIDOSTIGMINE BROMIDE
     Indication: CONSTIPATION
     Dosage: 2 DF
     Route: 048
     Dates: start: 201412, end: 20150305
  3. DEBRIDAT [Concomitant]
     Active Substance: TRIMEBUTINE MALEATE
     Dosage: UNK

REACTIONS (6)
  - VIIth nerve paralysis [Recovered/Resolved]
  - Headache [Not Recovered/Not Resolved]
  - Off label use [Recovered/Resolved]
  - Transient ischaemic attack [Recovered/Resolved]
  - Asthenia [Not Recovered/Not Resolved]
  - Nausea [Not Recovered/Not Resolved]

NARRATIVE: CASE EVENT DATE: 201502
